FAERS Safety Report 12424860 (Version 2)
Quarter: 2016Q2

REPORT INFORMATION
  Report Type: Spontaneous
  Country: GB (occurrence: GB)
  Receive Date: 20160601
  Receipt Date: 20160607
  Transmission Date: 20160815
  Serious: Yes (Life-Threatening, Other)
  Sender: FDA-Public Use
  Company Number: GB-PFIZER INC-2016277566

PATIENT
  Age: 58 Year
  Sex: Male

DRUGS (20)
  1. FENTANYL. [Concomitant]
     Active Substance: FENTANYL
     Dosage: AS PATIENT IS ON VENTILATOR
     Route: 042
  2. HYDROCORTISONE. [Concomitant]
     Active Substance: HYDROCORTISONE
     Dosage: 50 MG, QID (ROUTE NOT SPECIFIED)
  3. PABRINEX /00041801/ [Concomitant]
     Dosage: 2 PAIRS 3X/DAY (HIGH POTENCY NO.1)
     Route: 030
  4. PREGABALIN. [Concomitant]
     Active Substance: PREGABALIN
     Dosage: 50 MG (MORNING), 75 MG (NIGHT)
  5. CLINDAMYCIN PHOSPHATE. [Suspect]
     Active Substance: CLINDAMYCIN PHOSPHATE
     Dosage: 1.2 G, QID
     Route: 042
     Dates: start: 20160421, end: 20160428
  6. FOLIC ACID. [Concomitant]
     Active Substance: FOLIC ACID
     Dosage: 5 MG, QD
     Route: 060
  7. PERFALGAN [Concomitant]
     Active Substance: ACETAMINOPHEN
     Dosage: 1 G, QID
     Route: 042
  8. TARGOCID [Suspect]
     Active Substance: TEICOPLANIN
     Dosage: 400 MG, 1X/DAY (5 DOSES IN TOTAL)
     Route: 042
     Dates: start: 20160421, end: 20160428
  9. METOCLOPRAMIDE. [Concomitant]
     Active Substance: METOCLOPRAMIDE
     Dosage: 10 MG, TID
     Route: 041
  10. DALTEPARIN SODIUM [Concomitant]
     Active Substance: DALTEPARIN SODIUM
     Dosage: 5000 IU, UNK
     Route: 058
  11. FENTANYL. [Concomitant]
     Active Substance: FENTANYL
     Dosage: PATCH, 200 MCG/HR EVERY 72 HRS
  12. PANTOPRAZOLE [Suspect]
     Active Substance: PANTOPRAZOLE SODIUM
     Dosage: 40 MG, QD
     Route: 042
     Dates: start: 20160421, end: 20160428
  13. FOLIC ACID. [Concomitant]
     Active Substance: FOLIC ACID
     Dosage: 5 MG, QD
     Route: 060
  14. METRONIDAZOLE. [Suspect]
     Active Substance: METRONIDAZOLE
     Dosage: 500 MG, TID
     Route: 042
     Dates: start: 20160421, end: 20160428
  15. HYDROXYZINE [Concomitant]
     Active Substance: HYDROXYZINE\HYDROXYZINE HYDROCHLORIDE
     Dosage: 25 MG, QD
  16. PABRINEX /00041801/ [Concomitant]
     Dosage: 2 PAIRS, TID. HIGH POTENCY NO.2 (ROUTE NO SPECIFIED)
     Route: 030
  17. PHYTOMENADIONE [Concomitant]
     Active Substance: PHYTONADIONE
     Dosage: 10 MG, IMMEDIATELY
     Route: 042
  18. CIPROFLOXACIN HCL [Suspect]
     Active Substance: CIPROFLOXACIN HYDROCHLORIDE
     Dosage: 500 MG, BID
     Route: 042
     Dates: start: 20160421, end: 20160428
  19. LEVETIRACETAM. [Suspect]
     Active Substance: LEVETIRACETAM
     Dosage: 250 MG, QD (DRUG HISTORY: ORALLY, 250MG TWICE A DAY)
     Route: 042
     Dates: start: 20160421, end: 20160428
  20. BECLOMETASONE [Concomitant]
     Active Substance: BECLOMETHASONE DIPROPIONATE
     Dosage: 200 ?G, BID
     Route: 048

REACTIONS (1)
  - Toxic epidermal necrolysis [Recovering/Resolving]

NARRATIVE: CASE EVENT DATE: 20160422
